FAERS Safety Report 7292818-5 (Version None)
Quarter: 2011Q1

REPORT INFORMATION
  Report Type: 
  Country: None (occurrence: None)
  Receive Date: 20110203
  Receipt Date: 20110124
  Transmission Date: 20110831
  Serious: Yes (Hospitalization, Other)
  Sender: FDA-Public Use
  Company Number: 018717

PATIENT
  Sex: Female
  Weight: 91.5 kg

DRUGS (3)
  1. CIMZIA [Suspect]
     Indication: RHEUMATOID ARTHRITIS
     Dosage: (200 MG 1X/2 WEEKS, STUDY CDP870-050 SUBCUTANEOUS), (400 MG 1X/2 WEEKS SUBCUTANEOUS) (200 MG 1X/2 WE
     Route: 058
     Dates: start: 20060119, end: 20060706
  2. CIMZIA [Suspect]
     Indication: RHEUMATOID ARTHRITIS
     Dosage: (200 MG 1X/2 WEEKS, STUDY CDP870-050 SUBCUTANEOUS), (400 MG 1X/2 WEEKS SUBCUTANEOUS) (200 MG 1X/2 WE
     Route: 058
     Dates: start: 20060706, end: 20100908
  3. CIMZIA [Suspect]
     Indication: RHEUMATOID ARTHRITIS
     Dosage: (200 MG 1X/2 WEEKS, STUDY CDP870-050 SUBCUTANEOUS), (400 MG 1X/2 WEEKS SUBCUTANEOUS) (200 MG 1X/2 WE
     Route: 058
     Dates: start: 20101006, end: 20101103

REACTIONS (2)
  - ARTHROPOD BITE [None]
  - LYME DISEASE [None]
